FAERS Safety Report 23654909 (Version 4)
Quarter: 2025Q3

REPORT INFORMATION
  Report Type: Spontaneous
  Country: US (occurrence: US)
  Receive Date: 20240320
  Receipt Date: 20250707
  Transmission Date: 20251021
  Serious: No
  Sender: SANOFI AVENTIS
  Company Number: US-SA-SAC20240315000409

PATIENT
  Age: 57 Year
  Sex: Female

DRUGS (5)
  1. DUPIXENT [Suspect]
     Active Substance: DUPILUMAB
     Indication: Eczema
     Dosage: 300 MG, QOW
     Route: 058
     Dates: start: 2024
  2. DUPIXENT [Suspect]
     Active Substance: DUPILUMAB
     Indication: Dermatitis
     Route: 058
     Dates: start: 20240117, end: 20240117
  3. DUPIXENT [Suspect]
     Active Substance: DUPILUMAB
     Indication: Eczema
     Dosage: 300 MG, QOW
     Route: 058
     Dates: start: 2024
  4. DUPIXENT [Suspect]
     Active Substance: DUPILUMAB
     Indication: Dermatitis
  5. XDEMVY [Concomitant]
     Active Substance: LOTILANER

REACTIONS (8)
  - Dermatitis [Unknown]
  - Rash erythematous [Unknown]
  - Pruritus [Unknown]
  - Skin burning sensation [Unknown]
  - Condition aggravated [Unknown]
  - Rash [Unknown]
  - Therapeutic response shortened [Unknown]
  - Product use in unapproved indication [Unknown]

NARRATIVE: CASE EVENT DATE: 20240101
